FAERS Safety Report 9824709 (Version 6)
Quarter: 2014Q1

REPORT INFORMATION
  Report Type: Report from Study
  Country: FR (occurrence: FR)
  Receive Date: 20140117
  Receipt Date: 20140204
  Transmission Date: 20141002
  Serious: Yes (Life-Threatening, Hospitalization, Other)
  Sender: FDA-Public Use
  Company Number: FR-ROCHE-1312743

PATIENT
  Age: 60 Year
  Sex: Female

DRUGS (22)
  1. BEVACIZUMAB [Suspect]
     Indication: OVARIAN CANCER
     Route: 042
     Dates: start: 20131121, end: 20131211
  2. ERIBULIN MESILATE [Suspect]
     Indication: BREAST CANCER
     Dosage: 1, 21 DAYS
     Route: 042
     Dates: start: 20131121, end: 20131121
  3. NEULASTA [Concomitant]
     Route: 058
  4. ARANESP [Concomitant]
     Route: 058
  5. ESIDREX [Concomitant]
     Route: 048
  6. ATACAND [Concomitant]
     Route: 048
  7. EFFERALGAN CODEINE [Concomitant]
     Route: 048
  8. TAXOL [Concomitant]
     Route: 065
  9. SODIUM CHLORIDE [Concomitant]
     Route: 042
  10. XANAX [Concomitant]
     Route: 042
  11. BISOCE [Concomitant]
     Route: 042
  12. AMLOR [Concomitant]
     Route: 042
  13. LASILIX [Concomitant]
     Route: 042
  14. LASILIX [Concomitant]
     Route: 042
     Dates: start: 20131220
  15. OXYGEN [Concomitant]
     Dosage: 3 L/MIN
     Route: 065
  16. BISOPROLOL [Concomitant]
     Route: 065
  17. DUROGESIC [Concomitant]
     Route: 065
  18. RAMIPRIL [Concomitant]
     Route: 065
  19. RISORDAN [Concomitant]
  20. DUROGESIC [Concomitant]
     Route: 065
  21. ACTISKENAN [Concomitant]
     Dosage: EVERY 4 HOURS
     Route: 065
  22. ASPEGIC (ASPIRIN) [Concomitant]
     Dosage: IN MORNING
     Route: 065

REACTIONS (2)
  - Sepsis [Recovered/Resolved]
  - Acute pulmonary oedema [Recovered/Resolved]
